FAERS Safety Report 13023763 (Version 1)
Quarter: 2016Q4

REPORT INFORMATION
  Report Type: Spontaneous
  Country: US (occurrence: US)
  Receive Date: 20161213
  Receipt Date: 20161213
  Transmission Date: 20170207
  Serious: Yes (Other)
  Sender: FDA-Public Use
  Company Number: US-LPDUSPRD-20160389

PATIENT
  Age: 47 Year
  Sex: Male

DRUGS (13)
  1. INSULIN [Concomitant]
     Active Substance: INSULIN NOS
     Dosage: DOSE NOT PROVIDED
     Route: 058
  2. MIRCERA [Suspect]
     Active Substance: METHOXY POLYETHYLENE GLYCOL-EPOETIN BETA
     Dosage: 225 MG
     Route: 042
     Dates: start: 20160322, end: 20160419
  3. FUROSEMIDE. [Concomitant]
     Active Substance: FUROSEMIDE
     Dosage: DOSE NOT PROVIDED
     Route: 048
  4. LISINOPRIL. [Concomitant]
     Active Substance: LISINOPRIL
     Dosage: DOSE NOT PROVIDED
     Route: 048
  5. METOPROLOL. [Concomitant]
     Active Substance: METOPROLOL
     Dosage: DOSE NOT PROVIDED
     Route: 048
  6. VITAMIN D3 [Concomitant]
     Active Substance: CHOLECALCIFEROL
     Dosage: DOSE NOT PROVIDED
     Route: 048
  7. B-COMPLEX VITAMIN [Concomitant]
     Dosage: DOSE NOT PROVIDED
     Route: 048
  8. OMEPRAZOLE. [Concomitant]
     Active Substance: OMEPRAZOLE
     Dosage: DOSE NOT PROVIDED
     Route: 048
  9. MULTI-VITAMIN [Concomitant]
     Active Substance: .ALPHA.-TOCOPHEROL ACETATE, DL-\ASCORBIC ACID\CYANOCOBALAMIN\FLUORIDE ION\FOLIC ACID\NIACIN\PYRIDOXINE\RIBOFLAVIN\THIAMINE\VITAMIN A\VITAMIN D
     Dosage: DOSE NOT PROVIDED
     Route: 048
  10. RENEVLA [Concomitant]
     Dosage: DOSE NOT PROVIDED
     Route: 048
  11. ATORVASTATIN [Concomitant]
     Active Substance: ATORVASTATIN
     Dosage: DOSE NOT PROVIDED
     Route: 048
  12. VENOFER [Suspect]
     Active Substance: IRON SUCROSE
     Dosage: 100 MG ADMINISTERED OVER 5 MIN
     Route: 042
     Dates: end: 20160419
  13. AMLODIPINE [Concomitant]
     Active Substance: AMLODIPINE BESYLATE
     Dosage: DOSE NOT PROVIDED
     Route: 048

REACTIONS (1)
  - Seizure [Unknown]

NARRATIVE: CASE EVENT DATE: 20160322
